FAERS Safety Report 23484268 (Version 1)
Quarter: 2024Q1

REPORT INFORMATION
  Report Type: Spontaneous
  Country: US (occurrence: US)
  Receive Date: 20240206
  Receipt Date: 20240206
  Transmission Date: 20240410
  Serious: No
  Sender: FDA-Public Use
  Company Number: US-STRIDES ARCOLAB LIMITED-2023SP018875

PATIENT
  Sex: Female

DRUGS (1)
  1. OSELTAMIVIR [Suspect]
     Active Substance: OSELTAMIVIR
     Indication: Influenza
     Dosage: UNK, CAPSULE, 02 TIMES A DAY (ONE IN MORNING AND ONE AT NIGHT)
     Route: 048
     Dates: start: 20231219

REACTIONS (1)
  - Product administration error [Unknown]
